FAERS Safety Report 24210723 (Version 1)
Quarter: 2024Q3

REPORT INFORMATION
  Report Type: Report from Study
  Country: IQ (occurrence: IQ)
  Receive Date: 20240814
  Receipt Date: 20240814
  Transmission Date: 20241017
  Serious: Yes (Other)
  Sender: REGENERON
  Company Number: IQ-BAYER-2024A115813

PATIENT
  Age: 49 Year
  Sex: Male

DRUGS (1)
  1. EYLEA [Suspect]
     Active Substance: AFLIBERCEPT
     Indication: Diabetic retinal oedema
     Dosage: TWELVE DOSE IN EACH EYE, INJUCTION 24 DF, Q2MON; SOLUTION FOR INJECTION; 40 MG/ML
     Route: 031
     Dates: start: 2022

REACTIONS (1)
  - Cataract operation [Recovering/Resolving]
